FAERS Safety Report 6047496-X (Version None)
Quarter: 2009Q1

REPORT INFORMATION
  Report Type: 
  Country: None (occurrence: None)
  Receive Date: 20090122
  Receipt Date: 20090113
  Transmission Date: 20090719
  Serious: Yes (Hospitalization)
  Sender: FDA-Public Use
  Company Number: US-ROXANE LABORATORIES, INC.-2009-RO-00057RO

PATIENT
  Age: 46 Year
  Sex: Male

DRUGS (10)
  1. LITHIUM CARBONATE [Suspect]
     Indication: SCHIZOAFFECTIVE DISORDER
     Dosage: 2400MG
  2. LITHIUM CARBONATE [Suspect]
     Indication: BIPOLAR DISORDER
  3. GLIPIZIDE [Suspect]
  4. METFORMIN HCL [Suspect]
  5. HALOPERIDOL [Suspect]
  6. ASPIRIN [Suspect]
  7. QUETIAPINE FUMARATE [Suspect]
  8. BENZTROPINE [Suspect]
  9. LOSARTAN POSTASSIUM [Suspect]
  10. PANTOPRAZOLE SODIUM [Suspect]

REACTIONS (3)
  - ELECTROCARDIOGRAM ST SEGMENT ELEVATION [None]
  - OVERDOSE [None]
  - THERAPEUTIC AGENT TOXICITY [None]
